FAERS Safety Report 7948291-4 (Version None)
Quarter: 2011Q4

REPORT INFORMATION
  Report Type: 
  Country: None (occurrence: None)
  Receive Date: 20111130
  Receipt Date: 20111125
  Transmission Date: 20120403
  Serious: No
  Sender: FDA-Public Use
  Company Number: US-PFIZER INC-2011288537

PATIENT
  Sex: Female
  Weight: 72.562 kg

DRUGS (3)
  1. ADVIL CONGESTION RELIEF [Suspect]
     Indication: NASAL CONGESTION
     Dosage: 200/10 MG, EVERY 4 HRS
     Route: 048
     Dates: start: 20111124, end: 20111124
  2. ADVIL CONGESTION RELIEF [Suspect]
     Indication: HEADACHE
  3. ADVIL CONGESTION RELIEF [Suspect]
     Indication: COUGH

REACTIONS (10)
  - RASH ERYTHEMATOUS [None]
  - CHEST PAIN [None]
  - FEELING ABNORMAL [None]
  - TREMOR [None]
  - WHEEZING [None]
  - RASH MACULAR [None]
  - DYSPNOEA [None]
  - EYE PRURITUS [None]
  - PRURITUS [None]
  - ACTIVITIES OF DAILY LIVING IMPAIRED [None]
